FAERS Safety Report 23116971 (Version 1)
Quarter: 2023Q4

REPORT INFORMATION
  Report Type: Spontaneous
  Country: FR (occurrence: FR)
  Receive Date: 20231027
  Receipt Date: 20231027
  Transmission Date: 20240109
  Serious: Yes (Other)
  Sender: FDA-Public Use
  Company Number: FR-AFSSAPS-AN2023000923

PATIENT
  Age: 57 Year
  Sex: Female
  Weight: 60 kg

DRUGS (3)
  1. OLANZAPINE [Interacting]
     Active Substance: OLANZAPINE
     Indication: Hypomania
     Dosage: 15 MILLIGRAM, DAILY
     Route: 048
     Dates: end: 20230630
  2. HYDROXYZINE [Interacting]
     Active Substance: HYDROXYZINE HYDROCHLORIDE
     Indication: Anxiety
     Dosage: 25 MILLIGRAM, DAILY
     Route: 048
     Dates: start: 20230625, end: 20230630
  3. ACETAMINOPHEN [Concomitant]
     Active Substance: ACETAMINOPHEN
     Indication: Product used for unknown indication
     Dosage: 1 GRAM, DAILY
     Route: 048
     Dates: start: 20230630, end: 20230630

REACTIONS (3)
  - Malaise [Recovering/Resolving]
  - Drug interaction [Recovering/Resolving]
  - Electrocardiogram QT prolonged [Not Recovered/Not Resolved]

NARRATIVE: CASE EVENT DATE: 20230630
